FAERS Safety Report 10993492 (Version 3)
Quarter: 2015Q3

REPORT INFORMATION
  Report Type: Report from Study
  Country: US (occurrence: US)
  Receive Date: 20150407
  Receipt Date: 20150825
  Transmission Date: 20151125
  Serious: No
  Sender: FDA-Public Use
  Company Number: US-AMGEN-USASL2015032185

PATIENT
  Age: 70 Year
  Sex: Female

DRUGS (2)
  1. ENBREL [Suspect]
     Active Substance: ETANERCEPT
     Indication: ANKYLOSING SPONDYLITIS
     Dosage: 50 MG, WEEKLY
     Route: 065
     Dates: start: 20140722
  2. ENBREL [Suspect]
     Active Substance: ETANERCEPT
     Dosage: UNK
     Route: 065

REACTIONS (16)
  - Ear pain [Not Recovered/Not Resolved]
  - Sinus headache [Not Recovered/Not Resolved]
  - Influenza like illness [Not Recovered/Not Resolved]
  - Headache [Not Recovered/Not Resolved]
  - Sinusitis [Unknown]
  - Arthralgia [Unknown]
  - Back disorder [Unknown]
  - Musculoskeletal pain [Unknown]
  - Oropharyngeal pain [Not Recovered/Not Resolved]
  - Myalgia [Not Recovered/Not Resolved]
  - Stress [Unknown]
  - Pharyngeal erythema [Not Recovered/Not Resolved]
  - Pain in extremity [Unknown]
  - Tympanic membrane disorder [Not Recovered/Not Resolved]
  - Osteoarthritis [Unknown]
  - Fatigue [Unknown]

NARRATIVE: CASE EVENT DATE: 2015
